FAERS Safety Report 25778372 (Version 1)
Quarter: 2025Q3

REPORT INFORMATION
  Report Type: Spontaneous
  Country: US (occurrence: US)
  Receive Date: 20250909
  Receipt Date: 20250909
  Transmission Date: 20251021
  Serious: No
  Sender: NOVEN
  Company Number: US-NOVEN PHARMACEUTICALS, INC.-2025-NOV-US000633

PATIENT
  Sex: Female

DRUGS (2)
  1. COMBIPATCH [Suspect]
     Active Substance: ESTRADIOL\NORETHINDRONE ACETATE
     Indication: Menopause
     Route: 062
  2. COMBIPATCH [Suspect]
     Active Substance: ESTRADIOL\NORETHINDRONE ACETATE
     Indication: Hormone replacement therapy

REACTIONS (10)
  - Feeling jittery [Not Recovered/Not Resolved]
  - Anxiety [Not Recovered/Not Resolved]
  - Hyperphagia [Not Recovered/Not Resolved]
  - Mental disorder [Not Recovered/Not Resolved]
  - Depressed mood [Not Recovered/Not Resolved]
  - Weight increased [Not Recovered/Not Resolved]
  - Product ineffective [Recovered/Resolved]
  - Intentional device use issue [Unknown]
  - Product adhesion issue [Recovered/Resolved]
  - Off label use [Not Recovered/Not Resolved]

NARRATIVE: CASE EVENT DATE: 20250101
